FAERS Safety Report 13049151 (Version 2)
Quarter: 2017Q1

REPORT INFORMATION
  Report Type: Spontaneous
  Country: IL (occurrence: IL)
  Receive Date: 20161221
  Receipt Date: 20170102
  Transmission Date: 20170428
  Serious: Yes (Other)
  Sender: FDA-Public Use
  Company Number: IL-SUN PHARMACEUTICAL INDUSTRIES LTD-2016RR-129735

PATIENT
  Age: 68 Year
  Sex: Female

DRUGS (1)
  1. GLEEVEC [Suspect]
     Active Substance: IMATINIB MESYLATE
     Indication: GASTROINTESTINAL STROMAL TUMOUR
     Dosage: 400 MG, DAILY
     Route: 065

REACTIONS (4)
  - Gastric antral vascular ectasia [Recovered/Resolved]
  - Therapeutic response decreased [Unknown]
  - Gastrointestinal angiectasia [Recovered/Resolved]
  - Anaemia [Recovered/Resolved]
